FAERS Safety Report 19655615 (Version 1)
Quarter: 2021Q3

REPORT INFORMATION
  Report Type: Spontaneous
  Country: US (occurrence: US)
  Receive Date: 20210803
  Receipt Date: 20210803
  Transmission Date: 20211014
  Serious: Yes (Hospitalization)
  Sender: FDA-Public Use
  Company Number: None

PATIENT
  Age: 16 Year
  Sex: Male
  Weight: 49.5 kg

DRUGS (1)
  1. CYPROHEPTADINE. [Suspect]
     Active Substance: CYPROHEPTADINE
     Indication: EHLERS-DANLOS SYNDROME
     Route: 048

REACTIONS (2)
  - Confusional state [None]
  - Headache [None]

NARRATIVE: CASE EVENT DATE: 20210520
